FAERS Safety Report 9110932 (Version 1)
Quarter: 2013Q1

REPORT INFORMATION
  Report Type: Spontaneous
  Country: US (occurrence: US)
  Receive Date: 20130219
  Receipt Date: 20130219
  Transmission Date: 20140127
  Serious: No
  Sender: FDA-Public Use
  Company Number: US-BRISTOL-MYERS SQUIBB COMPANY-16723306

PATIENT
  Age: 54 Year
  Sex: Female
  Weight: 85.71 kg

DRUGS (1)
  1. ORENCIA FOR INJ [Suspect]
     Route: 058

REACTIONS (1)
  - Sinusitis [Unknown]
